FAERS Safety Report 9373950 (Version 2)
Quarter: 2013Q3

REPORT INFORMATION
  Report Type: Spontaneous
  Country: IT (occurrence: IT)
  Receive Date: 20130628
  Receipt Date: 20130716
  Transmission Date: 20140515
  Serious: Yes (Other)
  Sender: FDA-Public Use
  Company Number: IT-MYLANLABS-2013S1013214

PATIENT
  Age: 46 Year
  Sex: Female

DRUGS (4)
  1. OLANZAPINE [Suspect]
     Indication: PSYCHOTIC DISORDER
     Route: 048
     Dates: start: 20130513, end: 20130526
  2. ARKOLAMYL [Suspect]
     Indication: PSYCHOTIC DISORDER
     Route: 048
     Dates: start: 20130527, end: 20130610
  3. ZOLOFT [Concomitant]
     Indication: MOOD ALTERED
     Route: 048
  4. LORAZEPAM [Concomitant]
     Indication: ANXIETY

REACTIONS (3)
  - Urticaria [Recovered/Resolved]
  - Swollen tongue [Recovered/Resolved]
  - Product measured potency issue [Recovered/Resolved]
